FAERS Safety Report 21220060 (Version 2)
Quarter: 2022Q4

REPORT INFORMATION
  Report Type: Spontaneous
  Country: US (occurrence: US)
  Receive Date: 20220817
  Receipt Date: 20221125
  Transmission Date: 20230113
  Serious: No
  Sender: FDA-Public Use
  Company Number: US-BRISTOL-MYERS SQUIBB COMPANY-2022-038578

PATIENT
  Age: 67 Year
  Sex: Male

DRUGS (3)
  1. REVLIMID [Suspect]
     Active Substance: LENALIDOMIDE
     Indication: Plasma cell myeloma
     Dosage: FREQ: TAKE 1 WHOLE CAPSULE BY MOUTH WITH WATER AT THE SAME TIME EVERY DAY ON 1-14 OF EACH 21 DAY CYC
     Route: 048
     Dates: start: 20210820
  2. REVLIMID [Suspect]
     Active Substance: LENALIDOMIDE
     Dosage: FREQ: TAKE 1 WHOLE CAPSULE BY MOUTH WITH WATER AT THE SAME TIME EVERY DAY ON 1-14 OF EACH 21 DAY CYC
     Route: 048
     Dates: start: 20210820
  3. REVLIMID [Suspect]
     Active Substance: LENALIDOMIDE
     Dosage: FREQUENCY: TAKE 1 CAPSULE WHOLE BY MOUTH WITH WATER AT SAME TIME DAILY ON DAYS 1-21 OF EACH 28 DAY C
     Route: 048

REACTIONS (2)
  - Neuralgia [Unknown]
  - Fatigue [Unknown]
